FAERS Safety Report 7816819-0 (Version None)
Quarter: 2011Q4

REPORT INFORMATION
  Report Type: 
  Country: None (occurrence: None)
  Receive Date: 20111017
  Receipt Date: 20111011
  Transmission Date: 20120403
  Serious: Yes (Death)
  Sender: FDA-Public Use
  Company Number: US-SANOFI-AVENTIS-2011SA063913

PATIENT
  Age: 71 Year
  Sex: Male

DRUGS (5)
  1. JEVTANA KIT [Suspect]
     Indication: PROSTATE CANCER
     Dosage: DOSE OF 40 (UNITS NOT SPECIFIED)
     Route: 041
     Dates: start: 20100902, end: 20100902
  2. LUPRON [Concomitant]
  3. HORMONES AND RELATED AGENTS [Concomitant]
     Dates: end: 20100502
  4. JEVTANA KIT [Suspect]
     Dosage: DOSE OF 40 (UNITS NOT SPECIFIED)
     Route: 041
     Dates: start: 20100923, end: 20100923
  5. CASODEX [Concomitant]

REACTIONS (1)
  - DISEASE PROGRESSION [None]
